FAERS Safety Report 8030124-1 (Version None)
Quarter: 2012Q1

REPORT INFORMATION
  Report Type: 
  Country: None (occurrence: None)
  Receive Date: 20120109
  Receipt Date: 20120103
  Transmission Date: 20120608
  Serious: Yes (Death)
  Sender: FDA-Public Use
  Company Number: US-BAYER-2011-065434

PATIENT
  Age: 48 Year
  Sex: Female
  Weight: 95.238 kg

DRUGS (7)
  1. GUAIFENESIN/CODEINE [Concomitant]
     Dosage: UNK UNK, PRN
     Route: 048
     Dates: start: 20110301
  2. YAZ [Suspect]
     Indication: PREMENSTRUAL SYNDROME
     Dosage: UNK
     Dates: start: 20040301, end: 20110406
  3. DIET PILL [Concomitant]
  4. YAZ [Suspect]
  5. YASMIN [Suspect]
  6. PREDNISONE TAB [Concomitant]
     Dosage: UNK
     Route: 048
     Dates: start: 20110301
  7. YASMIN [Suspect]
     Indication: PREMENSTRUAL SYNDROME
     Dosage: UNK
     Dates: start: 20040301, end: 20110406

REACTIONS (5)
  - DEEP VEIN THROMBOSIS [None]
  - ANXIETY [None]
  - PAIN [None]
  - PULMONARY EMBOLISM [None]
  - INJURY [None]
